FAERS Safety Report 21187267 (Version 1)
Quarter: 2022Q3

REPORT INFORMATION
  Report Type: Spontaneous
  Country: None (occurrence: US)
  Receive Date: 20220808
  Receipt Date: 20220808
  Transmission Date: 20221027
  Serious: No
  Sender: FDA-Public Use
  Company Number: US-Marksans Pharma Limited-2131610

PATIENT
  Age: 72 Year
  Sex: Male
  Weight: 106.82 kg

DRUGS (1)
  1. GABAPENTIN [Suspect]
     Active Substance: GABAPENTIN
     Route: 048

REACTIONS (2)
  - Ocular hyperaemia [None]
  - Fatigue [None]
